FAERS Safety Report 13539411 (Version 3)
Quarter: 2017Q4

REPORT INFORMATION
  Report Type: Spontaneous
  Country: US (occurrence: US)
  Receive Date: 20170512
  Receipt Date: 20171023
  Transmission Date: 20180320
  Serious: Yes (Hospitalization)
  Sender: FDA-Public Use
  Company Number: US-PFIZER INC-2017207147

PATIENT
  Age: 64 Year
  Sex: Female
  Weight: 72.56 kg

DRUGS (1)
  1. SUTENT [Suspect]
     Active Substance: SUNITINIB MALATE
     Indication: RENAL CANCER
     Dosage: 50 MG (1 CAPSULE), CYCLIC (EVERY DAY, FOR 2 WEEKS THEN TAKE 1 WEEK BREAK (D1-D14 Q 21 D))
     Route: 048
     Dates: start: 201704

REACTIONS (4)
  - Urinary tract infection [Recovered/Resolved]
  - Vomiting [Unknown]
  - Constipation [Recovering/Resolving]
  - Nausea [Unknown]
